FAERS Safety Report 5692816-9 (Version None)
Quarter: 2008Q2

REPORT INFORMATION
  Report Type: 
  Country: None (occurrence: None)
  Receive Date: 20080401
  Receipt Date: 20080315
  Transmission Date: 20081010
  Serious: Yes (Life-Threatening)
  Sender: FDA-Public Use
  Company Number: ADE2008-0157

PATIENT
  Age: 62 Year
  Sex: Male

DRUGS (1)
  1. ATENOLOL [Suspect]

REACTIONS (13)
  - ACUTE MYOCARDIAL INFARCTION [None]
  - BLOOD PRESSURE IMMEASURABLE [None]
  - BUNDLE BRANCH BLOCK RIGHT [None]
  - HAEMODIALYSIS [None]
  - LEFT VENTRICULAR FAILURE [None]
  - METABOLIC ACIDOSIS [None]
  - NEUTROPHILIA [None]
  - PHAEOCHROMOCYTOMA [None]
  - PULMONARY EMBOLISM [None]
  - PULMONARY OEDEMA [None]
  - RENAL FAILURE [None]
  - RESPIRATORY FAILURE [None]
  - TACHYPNOEA [None]
